FAERS Safety Report 7324380-2 (Version None)
Quarter: 2011Q1

REPORT INFORMATION
  Report Type: 
  Country: None (occurrence: None)
  Receive Date: 20110301
  Receipt Date: 20110225
  Transmission Date: 20110831
  Serious: No
  Sender: FDA-Public Use
  Company Number: US-PFIZER INC-2011041933

PATIENT
  Sex: Male
  Weight: 69.8 kg

DRUGS (3)
  1. ADVIL LIQUI-GELS [Suspect]
     Indication: PYREXIA
  2. ADVIL LIQUI-GELS [Suspect]
     Indication: MALAISE
     Dosage: 800 MG, DAILY
     Route: 048
     Dates: start: 20110224, end: 20110224
  3. ADVIL LIQUI-GELS [Suspect]
     Indication: PAIN

REACTIONS (1)
  - OEDEMA PERIPHERAL [None]
